FAERS Safety Report 13124880 (Version 1)
Quarter: 2017Q1

REPORT INFORMATION
  Report Type: Spontaneous
  Country: US (occurrence: US)
  Receive Date: 20170118
  Receipt Date: 20170118
  Transmission Date: 20170428
  Serious: No
  Sender: FDA-Public Use
  Company Number: US-BAYER-2017-009657

PATIENT
  Age: 76 Year
  Sex: Male
  Weight: 68 kg

DRUGS (7)
  1. MIRABEGRON [Concomitant]
     Active Substance: MIRABEGRON
     Dosage: UNK
  2. TAMSULOSIN [Concomitant]
     Active Substance: TAMSULOSIN
     Dosage: UNK
  3. MIRALAX [Suspect]
     Active Substance: POLYETHYLENE GLYCOL 3350
     Indication: GASTROINTESTINAL DISORDER
     Dosage: 1 DF, UNK
     Route: 048
     Dates: end: 20170117
  4. PRAVASTATIN. [Concomitant]
     Active Substance: PRAVASTATIN
     Dosage: UNK
  5. MIDODRINE [Concomitant]
     Active Substance: MIDODRINE
     Dosage: UNK
  6. BAYER LOW DOSE [Concomitant]
     Active Substance: ASPIRIN
     Dosage: UNK
  7. CARBOLEVURE [CHARCOAL, ACTIVATED,SACCHAROMYCES CEREVISIAE] [Concomitant]
     Dosage: UNK

REACTIONS (5)
  - Product use issue [Unknown]
  - Product use issue [Unknown]
  - Abnormal faeces [Recovered/Resolved]
  - Constipation [Recovered/Resolved]
  - Gastrointestinal motility disorder [Recovered/Resolved]

NARRATIVE: CASE EVENT DATE: 201612
